FAERS Safety Report 17065939 (Version 2)
Quarter: 2019Q4

REPORT INFORMATION
  Report Type: Spontaneous
  Country: DE (occurrence: DE)
  Receive Date: 20191122
  Receipt Date: 20191126
  Transmission Date: 20200122
  Serious: Yes (Death)
  Sender: FDA-Public Use
  Company Number: DE-MYLANLABS-2019M1112050

PATIENT
  Age: 68 Year
  Sex: Female

DRUGS (1)
  1. DICLOFENAC [Suspect]
     Active Substance: DICLOFENAC
     Indication: LIMB DISCOMFORT
     Dosage: UNK
     Route: 030
     Dates: start: 1999

REACTIONS (3)
  - Abscess [Fatal]
  - Inflammation [Fatal]
  - Infection [Fatal]

NARRATIVE: CASE EVENT DATE: 1999
